FAERS Safety Report 11525240 (Version 3)
Quarter: 2015Q3

REPORT INFORMATION
  Report Type: Report from Study
  Country: US (occurrence: US)
  Receive Date: 20150918
  Receipt Date: 20150925
  Transmission Date: 20151125
  Serious: No
  Sender: FDA-Public Use
  Company Number: US-AMGEN-USASP2015095095

PATIENT
  Age: 42 Year
  Sex: Female

DRUGS (1)
  1. ENBREL [Suspect]
     Active Substance: ETANERCEPT
     Indication: RHEUMATOID ARTHRITIS
     Dosage: UNK UNK, QWK
     Route: 065
     Dates: start: 201503

REACTIONS (6)
  - Injection site extravasation [Unknown]
  - Injection site erythema [Unknown]
  - Device issue [Unknown]
  - Injection site reaction [Unknown]
  - Injection site swelling [Unknown]
  - Underdose [Unknown]

NARRATIVE: CASE EVENT DATE: 201504
